FAERS Safety Report 18239211 (Version 1)
Quarter: 2020Q3

REPORT INFORMATION
  Report Type: Report from Study
  Country: AR (occurrence: AR)
  Receive Date: 20200907
  Receipt Date: 20200907
  Transmission Date: 20201103
  Serious: Yes (Hospitalization, Other)
  Sender: FDA-Public Use
  Company Number: PHHY2019AR140985

PATIENT
  Age: 81 Year
  Sex: Female

DRUGS (4)
  1. XELEVIA MET [Concomitant]
     Indication: PRODUCT USED FOR UNKNOWN INDICATION
     Dosage: 1 DF, QN
     Route: 065
     Dates: start: 2017
  2. AZARGA [Suspect]
     Active Substance: BRINZOLAMIDE\TIMOLOL MALEATE
     Dosage: UNK, BID
     Route: 065
  3. INSULIN [Concomitant]
     Active Substance: INSULIN NOS
     Indication: DIABETES MELLITUS
     Route: 065
  4. AZARGA [Suspect]
     Active Substance: BRINZOLAMIDE\TIMOLOL MALEATE
     Indication: GLAUCOMA
     Dosage: 2 X 5/10, QD (STARTED APPROXIMATELY 3 YEARS AGO)
     Route: 065
     Dates: start: 2017

REACTIONS (23)
  - Femur fracture [Unknown]
  - Fall [Unknown]
  - Intraocular pressure increased [Unknown]
  - Cataract [Unknown]
  - Blood glucose increased [Recovering/Resolving]
  - Pain in extremity [Not Recovered/Not Resolved]
  - Localised infection [Unknown]
  - Accident [Recovering/Resolving]
  - Cellulitis [Recovering/Resolving]
  - Diabetic metabolic decompensation [Unknown]
  - Glaucoma [Unknown]
  - Stress fracture [Unknown]
  - Back pain [Unknown]
  - Hypertension [Unknown]
  - Hypersensitivity [Unknown]
  - Peripheral swelling [Unknown]
  - Lower limb fracture [Recovering/Resolving]
  - Blood pressure systolic increased [Unknown]
  - Joint injury [Unknown]
  - Ocular discomfort [Recovering/Resolving]
  - Movement disorder [Unknown]
  - Erythema [Unknown]
  - Blood potassium increased [Unknown]

NARRATIVE: CASE EVENT DATE: 201901
